FAERS Safety Report 14253757 (Version 1)
Quarter: 2017Q4

REPORT INFORMATION
  Report Type: Spontaneous
  Country: US (occurrence: US)
  Receive Date: 20171205
  Receipt Date: 20171205
  Transmission Date: 20180321
  Serious: Yes (Other)
  Sender: FDA-Public Use
  Company Number: US-CELGENEUS-USA-20171108041

PATIENT
  Sex: Female
  Weight: 95 kg

DRUGS (1)
  1. POMALYST [Suspect]
     Active Substance: POMALIDOMIDE
     Indication: PLASMA CELL MYELOMA
     Dosage: 4 MILLIGRAM
     Route: 048
     Dates: start: 20161104

REACTIONS (3)
  - White blood cell count decreased [Recovered/Resolved]
  - Nasopharyngitis [Recovered/Resolved]
  - Abdominal discomfort [Recovered/Resolved]
